FAERS Safety Report 11693121 (Version 1)
Quarter: 2015Q4

REPORT INFORMATION
  Report Type: Spontaneous
  Country: US (occurrence: None)
  Receive Date: 20151102
  Receipt Date: 20151102
  Transmission Date: 20160304
  Serious: No
  Sender: FDA-Public Use
  Company Number: None

PATIENT
  Age: 64 Year
  Sex: Female
  Weight: 81.19 kg

DRUGS (25)
  1. COPAXONE [Suspect]
     Active Substance: GLATIRAMER ACETATE
     Indication: MULTIPLE SCLEROSIS
     Dosage: 1 INJECTION, 3 TIMES A WEEK, GIVEN INTO/UNDER THE SKIN
     Dates: start: 20150907, end: 20151030
  2. AMLODIPINE BENSATE [Concomitant]
  3. FLONASE [Concomitant]
     Active Substance: FLUTICASONE PROPIONATE
  4. CPAP [Concomitant]
     Active Substance: DEVICE
  5. LIPITOR [Concomitant]
     Active Substance: ATORVASTATIN CALCIUM
  6. COPAXONE [Concomitant]
     Active Substance: GLATIRAMER ACETATE
  7. METROGEL [Concomitant]
     Active Substance: METRONIDAZOLE
  8. LORSATAN POTASSIUM [Concomitant]
  9. TRAMADOL HCL [Concomitant]
     Active Substance: TRAMADOL HYDROCHLORIDE
  10. XOPENEX [Concomitant]
     Active Substance: LEVALBUTEROL HYDROCHLORIDE
  11. ATROVENT [Concomitant]
     Active Substance: IPRATROPIUM BROMIDE
  12. VITAMIN D3 [Concomitant]
     Active Substance: CHOLECALCIFEROL
  13. FLAXSEED [Concomitant]
     Active Substance: FLAX SEED
  14. PROVIGIL [Concomitant]
     Active Substance: MODAFINIL
  15. PULMICORT FLEXHALER [Concomitant]
     Active Substance: BUDESONIDE
  16. CALCIUM CITRATE [Concomitant]
     Active Substance: CALCIUM CITRATE
  17. LEXAPRO [Concomitant]
     Active Substance: ESCITALOPRAM OXALATE
  18. AMBIEN [Concomitant]
     Active Substance: ZOLPIDEM TARTRATE
  19. PENNSAID SOLUTION [Concomitant]
  20. VALTREX [Concomitant]
     Active Substance: VALACYCLOVIR HYDROCHLORIDE
  21. XOPENEX HCL [Concomitant]
  22. TIZANIDINE. [Concomitant]
     Active Substance: TIZANIDINE
  23. BENADRYL [Concomitant]
     Active Substance: DIPHENHYDRAMINE HYDROCHLORIDE
  24. PREMARIN [Concomitant]
     Active Substance: ESTROGENS, CONJUGATED
  25. VITAMIN B12 [Concomitant]
     Active Substance: CYANOCOBALAMIN

REACTIONS (3)
  - Chills [None]
  - Fatigue [None]
  - Drug dose omission [None]

NARRATIVE: CASE EVENT DATE: 20151018
